FAERS Safety Report 9521357 (Version 1)
Quarter: 2013Q3

REPORT INFORMATION
  Report Type: Spontaneous
  Country: US (occurrence: None)
  Receive Date: 20130911
  Receipt Date: 20130911
  Transmission Date: 20140515
  Serious: No
  Sender: FDA-Public Use
  Company Number: AEUSA201300043

PATIENT
  Age: 71 Year
  Sex: Male

DRUGS (3)
  1. GAMMAKED [Suspect]
     Indication: CHRONIC INFLAMMATORY DEMYELINATING POLYRADICULONEUROPATHY
     Route: 042
     Dates: start: 20121214, end: 20130115
  2. XANAX [Concomitant]
  3. SEROQUEL [Concomitant]

REACTIONS (4)
  - Rash [None]
  - Dermatitis bullous [None]
  - Blister [None]
  - Psoriasis [None]
